FAERS Safety Report 5002550-6 (Version None)
Quarter: 2006Q2

REPORT INFORMATION
  Report Type: 
  Country: None (occurrence: None)
  Receive Date: 20060510
  Receipt Date: 20060504
  Transmission Date: 20061013
  Serious: Yes (Hospitalization)
  Sender: FDA-Public Use
  Company Number: HQWYE182804MAY06

PATIENT
  Age: 63 Year
  Sex: Male

DRUGS (7)
  1. CORDARONE [Suspect]
     Indication: ATRIAL FIBRILLATION
     Dosage: 300 MG 1X PER 1 DAY ORAL
     Route: 048
     Dates: start: 20050801, end: 20060413
  2. BLOPRESS           (CANDESARTAN CILEXETIL) [Concomitant]
  3. NORVASC [Concomitant]
  4. ARELIX     (PIRETANIDE) [Concomitant]
  5. MARCUMAR [Concomitant]
  6. ALLOPURINOL [Concomitant]
  7. TROMCARDIN  (ASPARTATE POTASSIUM/MAGNESIUM ASPARTATE) [Concomitant]

REACTIONS (1)
  - MAJOR DEPRESSION [None]
